FAERS Safety Report 7900566-0 (Version None)
Quarter: 2011Q4

REPORT INFORMATION
  Report Type: 
  Country: None (occurrence: None)
  Receive Date: 20111108
  Receipt Date: 20111031
  Transmission Date: 20120403
  Serious: Yes (Hospitalization)
  Sender: FDA-Public Use
  Company Number: US-US-EMD SERONO, INC.-7007080

PATIENT
  Sex: Male
  Weight: 70 kg

DRUGS (2)
  1. PROVIGIL [Concomitant]
     Indication: MULTIPLE SCLEROSIS
     Dates: start: 20110701
  2. REBIF [Suspect]
     Indication: MULTIPLE SCLEROSIS
     Route: 058
     Dates: start: 20070101

REACTIONS (3)
  - MUSCULAR WEAKNESS [None]
  - ABASIA [None]
  - HYPOAESTHESIA [None]
